FAERS Safety Report 10133757 (Version 1)
Quarter: 2014Q2

REPORT INFORMATION
  Report Type: Spontaneous
  Country: US (occurrence: US)
  Receive Date: 20140428
  Receipt Date: 20140428
  Transmission Date: 20141212
  Serious: No
  Sender: FDA-Public Use
  Company Number: US-ASTRAZENECA-2014SE18968

PATIENT
  Age: 58 Year
  Sex: Female
  Weight: 72.6 kg

DRUGS (5)
  1. BUDESONIDE [Suspect]
     Indication: COLITIS MICROSCOPIC
     Route: 048
     Dates: start: 2014
  2. METOPROLOL SUCCINATE [Suspect]
     Indication: BLOOD PRESSURE ABNORMAL
     Route: 048
  3. METOPROLOL SUCCINATE [Suspect]
     Indication: TACHYCARDIA
     Route: 048
  4. ESTADIOL [Concomitant]
     Indication: OESTROGEN THERAPY
  5. KLONAZAPAM [Concomitant]
     Indication: ANXIETY
     Dosage: 0.5.MG PRN

REACTIONS (7)
  - Upper respiratory tract infection [Unknown]
  - Hypertension [Unknown]
  - Chest pain [Unknown]
  - Hot flush [Unknown]
  - Tinnitus [Unknown]
  - Palpitations [Unknown]
  - Off label use [Unknown]
